FAERS Safety Report 12536720 (Version 2)
Quarter: 2017Q1

REPORT INFORMATION
  Report Type: Spontaneous
  Country: GB (occurrence: GB)
  Receive Date: 20160707
  Receipt Date: 20170301
  Transmission Date: 20170428
  Serious: Yes (Other)
  Sender: FDA-Public Use
  Company Number: GB-OCTA-GAM24816GB

PATIENT

DRUGS (1)
  1. OCTAGAM IMMUNE GLOBULIN (HUMAN) [Suspect]
     Active Substance: HUMAN IMMUNOGLOBULIN G
     Indication: PRODUCT USED FOR UNKNOWN INDICATION
     Route: 042

REACTIONS (7)
  - Abdominal pain [Unknown]
  - Photophobia [Unknown]
  - Headache [Unknown]
  - Altered state of consciousness [Unknown]
  - Hypotension [Unknown]
  - Vomiting [Unknown]
  - Injection site pruritus [Unknown]
